FAERS Safety Report 6577565-7 (Version None)
Quarter: 2010Q1

REPORT INFORMATION
  Report Type: 
  Country: None (occurrence: None)
  Receive Date: 20100211
  Receipt Date: 20100201
  Transmission Date: 20100710
  Serious: Yes (Other)
  Sender: FDA-Public Use
  Company Number: US-AMGEN-COG346785

PATIENT
  Sex: Male
  Weight: 60.8 kg

DRUGS (6)
  1. ENBREL [Suspect]
     Indication: ANKYLOSING SPONDYLITIS
     Route: 058
     Dates: start: 20070701, end: 20090901
  2. ENBREL [Suspect]
     Indication: PSORIATIC ARTHROPATHY
  3. ENBREL [Suspect]
     Indication: PSORIASIS
  4. OXYCODONE HCL AND ACETAMINOPHEN [Concomitant]
  5. SODIUM FLUORIDE [Concomitant]
     Route: 048
  6. MECLIZINE HCL [Concomitant]
     Dates: start: 20080604

REACTIONS (7)
  - ANXIETY [None]
  - CELLULITIS [None]
  - CONTUSION [None]
  - DRUG HYPERSENSITIVITY [None]
  - ECCHYMOSIS [None]
  - HAEMATOMA [None]
  - PAIN IN EXTREMITY [None]
